FAERS Safety Report 4984749-8 (Version None)
Quarter: 2006Q2

REPORT INFORMATION
  Report Type: 
  Country: None (occurrence: None)
  Receive Date: 20060427
  Receipt Date: 20050414
  Transmission Date: 20061013
  Serious: Yes (Disabling)
  Sender: FDA-Public Use
  Company Number: US-MERCK-0504USA02415

PATIENT
  Age: 41 Year
  Sex: Female
  Weight: 91 kg

DRUGS (6)
  1. VIOXX [Suspect]
     Indication: BACK PAIN
     Route: 048
     Dates: start: 19990501, end: 20000501
  2. VIOXX [Suspect]
     Route: 048
     Dates: start: 19990501, end: 20000501
  3. VIOXX [Suspect]
     Route: 048
     Dates: start: 20000501, end: 20040901
  4. VIOXX [Suspect]
     Indication: ARTHRITIS
     Route: 048
     Dates: start: 19990501, end: 20000501
  5. VIOXX [Suspect]
     Route: 048
     Dates: start: 19990501, end: 20000501
  6. VIOXX [Suspect]
     Route: 048
     Dates: start: 20000501, end: 20040901

REACTIONS (9)
  - BACK DISORDER [None]
  - CHEST PAIN [None]
  - CHRONIC FATIGUE SYNDROME [None]
  - DEPRESSION [None]
  - FIBROMYALGIA [None]
  - KIDNEY INFECTION [None]
  - PANCREATITIS CHRONIC [None]
  - PRESCRIBED OVERDOSE [None]
  - ULCER [None]
